FAERS Safety Report 12427782 (Version 10)
Quarter: 2018Q1

REPORT INFORMATION
  Report Type: Report from Study
  Country: FR (occurrence: FR)
  Receive Date: 20160602
  Receipt Date: 20180301
  Transmission Date: 20180508
  Serious: Yes (Hospitalization)
  Sender: FDA-Public Use
  Company Number: FR-ROCHE-1723502

PATIENT
  Age: 74 Year
  Sex: Male
  Weight: 68 kg

DRUGS (12)
  1. ATEZOLIZUMAB. [Suspect]
     Active Substance: ATEZOLIZUMAB
     Indication: NON-SMALL CELL LUNG CANCER STAGE IV
     Dosage: DATE OF MOST RECENT DOSE: 25/FEB/2016?FIXED DOSE AS PER PROTOCOL
     Route: 042
     Dates: start: 20151217
  2. PRAVASTATIN. [Concomitant]
     Active Substance: PRAVASTATIN
     Indication: DYSLIPIDAEMIA
  3. CORDARONE [Concomitant]
     Active Substance: AMIODARONE HYDROCHLORIDE
     Indication: ATRIAL FIBRILLATION
     Route: 065
     Dates: start: 201510
  4. XALATAN [Concomitant]
     Active Substance: LATANOPROST
     Indication: GLAUCOMA
  5. DEXERYL (FRANCE) [Concomitant]
     Active Substance: GLYCERIN\PARAFFIN
     Indication: PRURITUS
     Route: 065
     Dates: start: 20160320
  6. CETIRIZINE [Concomitant]
     Active Substance: CETIRIZINE HYDROCHLORIDE
     Indication: PRURITUS
     Route: 065
     Dates: start: 20160320
  7. APAISYL [Concomitant]
     Active Substance: ISOTHIPENDYL HYDROCHLORIDE
     Indication: PRURITUS
     Route: 065
     Dates: start: 20160320
  8. CARBOPLATIN. [Suspect]
     Active Substance: CARBOPLATIN
     Indication: NON-SMALL CELL LUNG CANCER STAGE IV
     Dosage: DATE OF MOST RECENT DOSE:  25/FEB/2016 (519.89 MG)?AREA UNDER THE CONCENTRATION CURVE (AUC) OF 6 MG/
     Route: 042
     Dates: start: 20151217
  9. PRADAXA [Concomitant]
     Active Substance: DABIGATRAN ETEXILATE MESYLATE
     Indication: ATRIAL FIBRILLATION
     Route: 065
     Dates: start: 201510
  10. SERETIDE [Concomitant]
     Active Substance: FLUTICASONE PROPIONATE\SALMETEROL XINAFOATE
     Indication: CHRONIC OBSTRUCTIVE PULMONARY DISEASE
     Route: 065
     Dates: start: 20160320
  11. OXYGEN. [Concomitant]
     Active Substance: OXYGEN
     Indication: DYSPNOEA
     Route: 065
     Dates: start: 20160407, end: 201604
  12. PACLITAXEL. [Suspect]
     Active Substance: PACLITAXEL
     Indication: NON-SMALL CELL LUNG CANCER STAGE IV
     Dosage: DATE OF MOST RECENT DOSE:  25/FEB/2016 (268.05 MG)?INITIAL DOSE AS PER STUDY PROTOCOL
     Route: 042
     Dates: start: 20151217

REACTIONS (2)
  - Anaemia [Recovered/Resolved]
  - Pneumonia [Recovered/Resolved]

NARRATIVE: CASE EVENT DATE: 20160106
